FAERS Safety Report 20950742 (Version 1)
Quarter: 2022Q2

REPORT INFORMATION
  Report Type: Spontaneous
  Country: US (occurrence: None)
  Receive Date: 20220610
  Receipt Date: 20220610
  Transmission Date: 20220720
  Serious: Yes (Disabling)
  Sender: FDA-Public Use
  Company Number: None

PATIENT
  Sex: Male
  Weight: 95.4 kg

DRUGS (3)
  1. HOMEOPATHICS [Suspect]
     Active Substance: HOMEOPATHICS
     Indication: Snoring
     Dosage: FREQUENCY : AT BEDTIME;?OTHER ROUTE : NOSE;?
     Route: 050
     Dates: start: 20220228, end: 20220403
  2. OMEPRAZOLE [Concomitant]
     Active Substance: OMEPRAZOLE
  3. CLARITIN [Concomitant]
     Active Substance: LORATADINE

REACTIONS (3)
  - Nasopharyngitis [None]
  - Sinus disorder [None]
  - Bronchitis [None]
